FAERS Safety Report 18034978 (Version 1)
Quarter: 2020Q3

REPORT INFORMATION
  Report Type: Spontaneous
  Country: US (occurrence: US)
  Receive Date: 20200716
  Receipt Date: 20200716
  Transmission Date: 20201103
  Serious: No
  Sender: FDA-Public Use
  Company Number: None

PATIENT
  Age: 70 Year
  Sex: Male

DRUGS (17)
  1. BREO ELLIPT [Concomitant]
  2. WIXELA INHUB [Concomitant]
     Active Substance: FLUTICASONE PROPIONATE\SALMETEROL XINAFOATE
  3. TOBRAMYCIN 300MG/5 ML NEB SLN [Suspect]
     Active Substance: TOBRAMYCIN
     Indication: BRONCHIECTASIS
     Dosage: 1 VIAL TWICE DAILY  INHALED
     Route: 055
     Dates: start: 20170823
  4. AZITHROMYCIN ANHYDROUS. [Concomitant]
     Active Substance: AZITHROMYCIN ANHYDROUS
  5. ALPRAZOLAM. [Concomitant]
     Active Substance: ALPRAZOLAM
  6. LEVOFLOXACIN. [Concomitant]
     Active Substance: LEVOFLOXACIN
  7. PREDNISONE. [Concomitant]
     Active Substance: PREDNISONE
  8. SOD CHL 3% [Concomitant]
  9. ESOMEPRAZOLE. [Concomitant]
     Active Substance: ESOMEPRAZOLE MAGNESIUM
  10. SMZ/TMP DS [Concomitant]
     Active Substance: SULFAMETHOXAZOLE\TRIMETHOPRIM
  11. ALBUTEROL HFA [Concomitant]
     Active Substance: ALBUTEROL SULFATE
  12. BENZONATE [Concomitant]
     Active Substance: BENZONATATE
  13. DOXYCYCLINE HYC [Concomitant]
     Active Substance: DOXYCYCLINE HYCLATE
  14. MONTELUKAST [Concomitant]
     Active Substance: MONTELUKAST SODIUM
  15. BUDESONIDE SUSP [Concomitant]
  16. METFORMIN ER [Concomitant]
     Active Substance: METFORMIN HYDROCHLORIDE
  17. TADALAFIL. [Concomitant]
     Active Substance: TADALAFIL

REACTIONS (1)
  - Deafness [None]
